FAERS Safety Report 19115896 (Version 1)
Quarter: 2021Q2

REPORT INFORMATION
  Report Type: Other
  Country: LK (occurrence: LK)
  Receive Date: 20210409
  Receipt Date: 20210409
  Transmission Date: 20210717
  Serious: Yes (Hospitalization)
  Sender: FDA-Public Use
  Company Number: LK-B.BRAUN MEDICAL INC.-2109165

PATIENT
  Age: 43 Year
  Sex: Male

DRUGS (1)
  1. SODIUM CHLORIDE INJECTION USP 0264?7800?09 [Suspect]
     Active Substance: SODIUM CHLORIDE
     Indication: HYPONATRAEMIA

REACTIONS (1)
  - Osmotic demyelination syndrome [None]
